FAERS Safety Report 23394585 (Version 1)
Quarter: 2024Q1

REPORT INFORMATION
  Report Type: Spontaneous
  Country: CN (occurrence: CN)
  Receive Date: 20240112
  Receipt Date: 20240112
  Transmission Date: 20240410
  Serious: Yes (Other)
  Sender: FDA-Public Use
  Company Number: CN-91440300279544901A-J2023HPR000372

PATIENT
  Age: 47 Year
  Sex: Male
  Weight: 65 kg

DRUGS (2)
  1. ENOXAPARIN SODIUM [Suspect]
     Active Substance: ENOXAPARIN SODIUM
     Indication: Anticoagulant therapy
     Dosage: 0.4ML,QD
     Dates: start: 20231211, end: 20231211
  2. NITROGLYCERIN [Concomitant]
     Active Substance: NITROGLYCERIN
     Indication: Angina pectoris
     Dosage: 10MG
     Route: 041
     Dates: start: 20231211, end: 20231211

REACTIONS (4)
  - Chest discomfort [Recovering/Resolving]
  - Hyperhidrosis [Recovering/Resolving]
  - Dysphoria [Recovering/Resolving]
  - Hypoaesthesia [Recovering/Resolving]

NARRATIVE: CASE EVENT DATE: 20231211
